FAERS Safety Report 5259667-0 (Version None)
Quarter: 2007Q1

REPORT INFORMATION
  Report Type: 
  Country: None (occurrence: None)
  Receive Date: 20070307
  Receipt Date: 20070307
  Transmission Date: 20070707
  Serious: No
  Sender: FDA-Public Use
  Company Number: None

PATIENT
  Age: 64 Year
  Sex: Female
  Weight: 77.1115 kg

DRUGS (1)
  1. ZICAM COLD REMEDY NASAL GEL MATRIXX INITIATIVES, INC. [Suspect]
     Indication: NASOPHARYNGITIS
     Dosage: ONE SPRAY EACH NOSTRIL USED 6-8 TIMES MAY
     Dates: start: 20061105, end: 20061108

REACTIONS (2)
  - AGEUSIA [None]
  - ANOSMIA [None]
